FAERS Safety Report 8878530 (Version 2)
Quarter: 2012Q4

REPORT INFORMATION
  Report Type: 
  Country: JP (occurrence: JP)
  Receive Date: 20121030
  Receipt Date: 20121119
  Transmission Date: 20130627
  Serious: Yes (Other)
  Sender: FDA-Public Use
  Company Number: JP-GE HEALTHCARE MEDICAL DIAGNOSTICS-OMPQ-NO-1210S-1138

PATIENT
  Age: 42 Year
  Sex: Female

DRUGS (5)
  1. OMNIPAQUE [Suspect]
     Indication: LUNG NEOPLASM MALIGNANT
     Route: 042
     Dates: start: 20121019, end: 20121019
  2. WARFARIN [Concomitant]
  3. LOXOPROFEN SODIUM [Concomitant]
  4. REBAMIPIDE [Concomitant]
  5. NERIPROCT [Concomitant]

REACTIONS (2)
  - Anaphylactoid shock [Recovered/Resolved]
  - Ear pain [Recovered/Resolved]
